FAERS Safety Report 25290648 (Version 1)
Quarter: 2025Q2

REPORT INFORMATION
  Report Type: Report from Study
  Country: US (occurrence: US)
  Receive Date: 20250510
  Receipt Date: 20250510
  Transmission Date: 20250717
  Serious: No
  Sender: ACADIA PHARMACEUTICALS
  Company Number: US-ACADIA PHARMACEUTICALS INC.-ACA-2025-PIM-005415

PATIENT
  Sex: Male

DRUGS (15)
  1. NUPLAZID [Suspect]
     Active Substance: PIMAVANSERIN TARTRATE
     Indication: Parkinson^s disease
     Dosage: 34 MILLIGRAM, TAKE ONE CAPSULE BY MOUTH ONCE DAILY
     Route: 048
  2. NUPLAZID [Suspect]
     Active Substance: PIMAVANSERIN TARTRATE
     Indication: Hallucination
  3. NUPLAZID [Suspect]
     Active Substance: PIMAVANSERIN TARTRATE
     Indication: Delusion
  4. AMANTADINE HYDROCHLORIDE [Concomitant]
     Active Substance: AMANTADINE HYDROCHLORIDE
  5. ASPIRIN [Concomitant]
     Active Substance: ASPIRIN
  6. AZILECT [Concomitant]
     Active Substance: RASAGILINE MESYLATE
  7. FAMOTIDINE [Concomitant]
     Active Substance: FAMOTIDINE
  8. FERROUS SULFATE [Concomitant]
     Active Substance: FERROUS SULFATE
  9. FOLIC ACID [Concomitant]
     Active Substance: FOLIC ACID
  10. MERCAPTOPURINE [Concomitant]
     Active Substance: MERCAPTOPURINE
  11. ONDANSETRON [Concomitant]
     Active Substance: ONDANSETRON
  12. PRILOSEC OTC [Concomitant]
     Active Substance: OMEPRAZOLE MAGNESIUM
  13. RYTARY [Concomitant]
     Active Substance: CARBIDOPA\LEVODOPA
  14. SYNTHROID [Concomitant]
     Active Substance: LEVOTHYROXINE SODIUM
  15. WARFARIN SODIUM [Concomitant]
     Active Substance: WARFARIN SODIUM

REACTIONS (3)
  - Dyskinesia [Not Recovered/Not Resolved]
  - Delusion [Not Recovered/Not Resolved]
  - Confusional state [Not Recovered/Not Resolved]
